FAERS Safety Report 9238705 (Version 1)
Quarter: 2013Q2

REPORT INFORMATION
  Report Type: Spontaneous
  Country: US (occurrence: None)
  Receive Date: 20130417
  Receipt Date: 20130417
  Transmission Date: 20140414
  Serious: Yes (Other)
  Sender: FDA-Public Use
  Company Number: None

PATIENT
  Age: 67 Year
  Sex: Female
  Weight: 68.04 kg

DRUGS (1)
  1. ATORVASTATIN 40MG WATSON [Suspect]
     Indication: BLOOD CHOLESTEROL INCREASED
     Dosage: 1 TABLET  DAILY  BY MOUTH
     Route: 048
     Dates: start: 20120824, end: 20121017

REACTIONS (6)
  - Back pain [None]
  - Pelvic pain [None]
  - Sensation of pressure [None]
  - Drug ineffective [None]
  - Dizziness [None]
  - Paraesthesia [None]
